FAERS Safety Report 4802512-5 (Version None)
Quarter: 2005Q4

REPORT INFORMATION
  Report Type: 
  Country: None (occurrence: None)
  Receive Date: 20051018
  Receipt Date: 20050930
  Transmission Date: 20060501
  Serious: Yes (Hospitalization, Disabling)
  Sender: FDA-Public Use
  Company Number: BE-MERCK-0510BEL00001

PATIENT
  Age: 64 Year
  Sex: Male

DRUGS (5)
  1. ZOCOR [Suspect]
     Indication: HYPERCHOLESTEROLAEMIA
     Route: 048
     Dates: end: 20050929
  2. ZOCOR [Suspect]
     Route: 048
     Dates: start: 20050930
  3. METOPROLOL TARTRATE [Concomitant]
     Route: 048
  4. ASPIRIN [Concomitant]
     Route: 048
  5. METFORMIN HYDROCHLORIDE [Concomitant]
     Route: 048

REACTIONS (2)
  - DIPLOPIA [None]
  - EXTRAOCULAR MUSCLE PARESIS [None]
